FAERS Safety Report 8386589-9 (Version None)
Quarter: 2012Q2

REPORT INFORMATION
  Report Type: 
  Country: None (occurrence: None)
  Receive Date: 20120525
  Receipt Date: 20111130
  Transmission Date: 20120825
  Serious: No
  Sender: FDA-Public Use
  Company Number: US-GLAXOSMITHKLINE-A0956052A

PATIENT
  Age: 70 Year
  Sex: Female

DRUGS (4)
  1. VERAMYST [Suspect]
     Indication: RHINITIS ALLERGIC
     Dosage: 2PUFF PER DAY
     Route: 045
     Dates: start: 20111101, end: 20111124
  2. VITAMIN TAB [Concomitant]
  3. FISH OIL [Concomitant]
  4. TOPROL-XL [Concomitant]

REACTIONS (4)
  - RASH [None]
  - OROPHARYNGEAL PAIN [None]
  - COUGH [None]
  - DRY EYE [None]
